FAERS Safety Report 18680114 (Version 1)
Quarter: 2020Q4

REPORT INFORMATION
  Report Type: Spontaneous
  Country: US (occurrence: US)
  Receive Date: 20201229
  Receipt Date: 20201229
  Transmission Date: 20210114
  Serious: Yes (Hospitalization)
  Sender: FDA-Public Use
  Company Number: US-ELI_LILLY_AND_COMPANY-US202012011735

PATIENT
  Sex: Female
  Weight: 88.5 kg

DRUGS (2)
  1. BARICITINIB. [Suspect]
     Active Substance: BARICITINIB
     Indication: COVID-19
     Dosage: 4MG, DAILY
     Route: 048
     Dates: start: 20201207, end: 20201216
  2. REMDESIVIR. [Concomitant]
     Active Substance: REMDESIVIR
     Indication: PRODUCT USED FOR UNKNOWN INDICATION
     Dosage: UNK
     Route: 065
     Dates: start: 20201207, end: 20201211

REACTIONS (3)
  - Thrombocytosis [Unknown]
  - Cerebrovascular accident [Unknown]
  - Renal impairment [Unknown]
